FAERS Safety Report 8249223-4 (Version None)
Quarter: 2012Q1

REPORT INFORMATION
  Report Type: 
  Country: None (occurrence: None)
  Receive Date: 20120327
  Receipt Date: 20120319
  Transmission Date: 20120608
  Serious: Yes (Other)
  Sender: FDA-Public Use
  Company Number: 2012-027634

PATIENT
  Age: 59 Year
  Sex: Female
  Weight: 61.7 kg

DRUGS (4)
  1. HYDROCHLOROTHIAZIDE [Concomitant]
  2. CITRACAL PETITES(COLECALCIFEROL + CALCIUM CITRATE) FILM-COATEA TABLET [Suspect]
     Dosage: 1 DF, ONCE, BOTTLE COUNT 200S, ORAL
     Route: 048
     Dates: start: 20120317
  3. ASPIRIN [Suspect]
  4. LISINOPRIL [Concomitant]

REACTIONS (2)
  - POSTMENOPAUSAL HAEMORRHAGE [None]
  - VAGINAL HAEMORRHAGE [None]
